FAERS Safety Report 18379471 (Version 2)
Quarter: 2020Q4

REPORT INFORMATION
  Report Type: Report from Study
  Country: CL (occurrence: CL)
  Receive Date: 20201013
  Receipt Date: 20201229
  Transmission Date: 20210114
  Serious: Yes (Hospitalization, Other)
  Sender: FDA-Public Use
  Company Number: CL-UCBSA-2020039484

PATIENT
  Age: 6 Year
  Sex: Female

DRUGS (3)
  1. LACOSAMIDE. [Suspect]
     Active Substance: LACOSAMIDE
     Indication: EPILEPSY
     Dosage: 75 MILLIGRAM, 2X/DAY (BID)
     Route: 048
     Dates: start: 20181201
  2. NEOTIN [ACETYLCARNITINE HYDROCHLORIDE] [Concomitant]
     Indication: EPILEPSY
     Dosage: 1500 MILLIGRAM, ONCE DAILY (QD)
     Route: 048
     Dates: end: 20201006
  3. CREATINE [Concomitant]
     Active Substance: CREATINE
     Indication: EPILEPSY
     Dosage: 1000 MILLIGRAM, ONCE DAILY (QD)
     Route: 048
     Dates: end: 20200901

REACTIONS (3)
  - Febrile convulsion [Recovered/Resolved]
  - Herpes virus infection [Not Recovered/Not Resolved]
  - Balance disorder [Recovered/Resolved]

NARRATIVE: CASE EVENT DATE: 20200901
